FAERS Safety Report 7371552-7 (Version None)
Quarter: 2011Q1

REPORT INFORMATION
  Report Type: 
  Country: None (occurrence: None)
  Receive Date: 20110316
  Receipt Date: 20110311
  Transmission Date: 20110831
  Serious: Yes (Other)
  Sender: FDA-Public Use
  Company Number: CL-298-2011

PATIENT
  Age: 54 Year
  Sex: Female

DRUGS (1)
  1. METRONIDAZOLE UNK  200MG  ORAL INFECTION PROPHYLAXIS [Suspect]
     Indication: INFECTION PROPHYLAXIS
     Dosage: 200MG  ORAL
     Route: 048
     Dates: start: 20110222

REACTIONS (1)
  - SUICIDAL IDEATION [None]
